FAERS Safety Report 16940785 (Version 1)
Quarter: 2019Q4

REPORT INFORMATION
  Report Type: Spontaneous
  Country: US (occurrence: US)
  Receive Date: 20191021
  Receipt Date: 20191021
  Transmission Date: 20200122
  Serious: Yes (Death)
  Sender: FDA-Public Use
  Company Number: US-PFIZER INC-2019452529

PATIENT
  Age: 50 Year

DRUGS (2)
  1. VIAGRA [Suspect]
     Active Substance: SILDENAFIL CITRATE
     Indication: ERECTILE DYSFUNCTION
     Dosage: UNK
  2. CIALIS [Suspect]
     Active Substance: TADALAFIL
     Indication: ERECTILE DYSFUNCTION
     Dosage: 20 MG EVERY OTHER DAY PRN
     Route: 048
     Dates: start: 20120405, end: 20130530

REACTIONS (6)
  - Metastatic malignant melanoma [Fatal]
  - Emotional distress [Fatal]
  - Malignant melanoma [Fatal]
  - Respiratory arrest [Fatal]
  - Depression [Fatal]
  - Mental fatigue [Fatal]

NARRATIVE: CASE EVENT DATE: 20130501
